FAERS Safety Report 16262311 (Version 2)
Quarter: 2019Q2

REPORT INFORMATION
  Report Type: Spontaneous
  Country: US (occurrence: US)
  Receive Date: 20190501
  Receipt Date: 20190619
  Transmission Date: 20190711
  Serious: No
  Sender: FDA-Public Use
  Company Number: US-TEIKOKU PHARMA USA-TPU2019-00372

PATIENT
  Sex: Female
  Weight: 81.72 kg

DRUGS (5)
  1. ELIQUIS [Concomitant]
     Active Substance: APIXABAN
     Indication: THROMBOSIS
     Dates: start: 2018
  2. LIDOCAINE PATCH [Suspect]
     Active Substance: LIDOCAINE
     Indication: FOOT DEFORMITY
     Route: 061
     Dates: start: 2019
  3. SPIRIVA [Concomitant]
     Active Substance: TIOTROPIUM BROMIDE MONOHYDRATE
     Indication: LUNG DISORDER
  4. LIDOCAINE PATCH [Suspect]
     Active Substance: LIDOCAINE
     Indication: AMPUTATION STUMP PAIN
  5. INCRUSE ELLIPTA [Concomitant]
     Active Substance: UMECLIDINIUM BROMIDE
     Indication: CHRONIC OBSTRUCTIVE PULMONARY DISEASE

REACTIONS (2)
  - Inappropriate schedule of product administration [Unknown]
  - Drug ineffective for unapproved indication [Not Recovered/Not Resolved]

NARRATIVE: CASE EVENT DATE: 2019
